FAERS Safety Report 15826194 (Version 1)
Quarter: 2019Q1

REPORT INFORMATION
  Report Type: Report from Study
  Country: ES (occurrence: ES)
  Receive Date: 20190115
  Receipt Date: 20190115
  Transmission Date: 20190417
  Serious: Yes (Hospitalization)
  Sender: FDA-Public Use
  Company Number: ES-SA-2019SA006596

PATIENT
  Age: 73 Year
  Sex: Female
  Weight: 69 kg

DRUGS (8)
  1. FLUOROURACIL. [Suspect]
     Active Substance: FLUOROURACIL
     Dosage: 400 MG/M2, QCY
     Route: 040
     Dates: start: 20181211, end: 20181211
  2. OXALIPLATIN. [Suspect]
     Active Substance: OXALIPLATIN
     Dosage: 85 MG/M2, QCY
     Route: 042
     Dates: start: 20180612, end: 20180612
  3. FLUOROURACIL. [Suspect]
     Active Substance: FLUOROURACIL
     Indication: PANCREATIC CARCINOMA METASTATIC
     Dosage: 2400 MG/M2, QCY
     Route: 042
     Dates: start: 20181211, end: 20181211
  4. CALCIUM FOLINATE [Suspect]
     Active Substance: LEUCOVORIN CALCIUM
     Indication: PANCREATIC CARCINOMA METASTATIC
     Dosage: 400 MG/M2, QCY
     Route: 042
     Dates: start: 20181211, end: 20181211
  5. CALCIUM FOLINATE [Suspect]
     Active Substance: LEUCOVORIN CALCIUM
     Dosage: 400 MG/M2, QCY
     Route: 042
     Dates: start: 20180612, end: 20180612
  6. FLUOROURACIL. [Suspect]
     Active Substance: FLUOROURACIL
     Dosage: 2400 MG/M2, QCY
     Route: 042
     Dates: start: 20180612, end: 20180612
  7. OXALIPLATIN. [Suspect]
     Active Substance: OXALIPLATIN
     Indication: PANCREATIC CARCINOMA METASTATIC
     Dosage: 85 MG/M2, QCY
     Route: 042
     Dates: start: 20181211, end: 20181211
  8. FLUOROURACIL. [Suspect]
     Active Substance: FLUOROURACIL
     Dosage: 400 MG/M2, QCY
     Route: 040
     Dates: start: 20180612, end: 20180612

REACTIONS (1)
  - Peritonsillar abscess [Recovering/Resolving]

NARRATIVE: CASE EVENT DATE: 20190102
